FAERS Safety Report 4333175-3 (Version None)
Quarter: 2004Q1

REPORT INFORMATION
  Report Type: 
  Country: None (occurrence: None)
  Receive Date: 20040330
  Receipt Date: 20040316
  Transmission Date: 20041129
  Serious: Yes (Other)
  Sender: FDA-Public Use
  Company Number: 205320

PATIENT
  Age: 38 Year
  Sex: Male

DRUGS (4)
  1. EFALIZUMAB (EFALIZUMAB) [Suspect]
     Indication: PSORIASIS
     Dosage: 1 MG/KG, 1/WEEK, SUBCUTANEOUS
     Route: 058
     Dates: start: 20030527, end: 20030812
  2. EFALIZUMAB (EFALIZUMAB) [Suspect]
     Indication: PSORIASIS
     Dosage: 1 MG/KG, 1/WEEK, SUBCUTANEOUS
     Route: 058
     Dates: start: 20031111, end: 20031118
  3. DEXAMETHASONE [Concomitant]
  4. DICLOFENAC SODIUM [Concomitant]

REACTIONS (3)
  - ASTHENIA [None]
  - MYOSITIS [None]
  - PARAESTHESIA [None]
